FAERS Safety Report 15712451 (Version 1)
Quarter: 2018Q4

REPORT INFORMATION
  Report Type: Report from Study
  Country: DE (occurrence: DE)
  Receive Date: 20181212
  Receipt Date: 20181212
  Transmission Date: 20190205
  Serious: Yes (Other)
  Sender: FDA-Public Use
  Company Number: DE-ROCHE-2026818

PATIENT
  Age: 65 Year
  Sex: Male
  Weight: 94 kg

DRUGS (11)
  1. PANTOPRAZOL [Concomitant]
     Active Substance: PANTOPRAZOLE SODIUM
     Dosage: 1-0-0
     Route: 048
  2. CLOPIDOGREL [Concomitant]
     Active Substance: CLOPIDOGREL BISULFATE
     Dosage: 1-0-0
     Route: 048
  3. RITUXIMAB. [Suspect]
     Active Substance: RITUXIMAB
     Indication: B-CELL LYMPHOMA
     Route: 058
     Dates: start: 20161013, end: 20170202
  4. SIMVASTATIN. [Concomitant]
     Active Substance: SIMVASTATIN
     Indication: CORONARY ARTERY DISEASE
     Dosage: 0-0-1
     Route: 048
  5. TRAMADOLOR [Concomitant]
     Active Substance: TRAMADOL
     Dosage: 1-0-0
     Route: 048
  6. RITUXIMAB. [Suspect]
     Active Substance: RITUXIMAB
     Indication: B-CELL LYMPHOMA
     Dosage: EQUAL TO 800 MG
     Route: 042
     Dates: start: 20160922, end: 20160922
  7. RAMIPRIL. [Concomitant]
     Active Substance: RAMIPRIL
     Indication: CORONARY ARTERY DISEASE
     Dosage: 1-0-0
     Route: 048
  8. EZETIMIB [Concomitant]
     Active Substance: EZETIMIBE
     Indication: CORONARY ARTERY DISEASE
     Dosage: 0-0-1
     Route: 048
  9. RITUXIMAB. [Suspect]
     Active Substance: RITUXIMAB
     Route: 058
     Dates: start: 20170330
  10. ASPIRIN. [Concomitant]
     Active Substance: ASPIRIN
     Indication: CORONARY ARTERY DISEASE
     Dosage: 1-0-0
     Route: 048
  11. METOPROLOL. [Concomitant]
     Active Substance: METOPROLOL
     Indication: CORONARY ARTERY DISEASE
     Dosage: 1-0-1
     Route: 048

REACTIONS (6)
  - Bronchitis [Unknown]
  - Lymphadenopathy [Unknown]
  - Polyneuropathy [Unknown]
  - Rash [Recovered/Resolved]
  - Leukopenia [Unknown]
  - Pollakiuria [Unknown]

NARRATIVE: CASE EVENT DATE: 20161020
